FAERS Safety Report 7431025-X (Version None)
Quarter: 2011Q2

REPORT INFORMATION
  Report Type: 
  Country: None (occurrence: None)
  Receive Date: 20110421
  Receipt Date: 20110404
  Transmission Date: 20111010
  Serious: No
  Sender: FDA-Public Use
  Company Number: US-B.I. PHARMACEUTICALS,INC./RIDGEFIELD-2011-BP-09984BP

PATIENT
  Sex: Female

DRUGS (7)
  1. PRADAXA [Suspect]
     Indication: ATRIAL FIBRILLATION
     Dosage: 300 MG
     Route: 048
     Dates: start: 20110325
  2. LIBRIUM [Concomitant]
     Indication: ANXIETY
     Dosage: 10 MG
  3. DIVALPROEX [Concomitant]
     Indication: BIPOLAR DISORDER
     Dosage: 500 MG
  4. CALCIUM CITRATE [Concomitant]
     Indication: SUPPLEMENTATION THERAPY
  5. VITAMIN D [Concomitant]
     Indication: SUPPLEMENTATION THERAPY
     Dosage: 50000 U
  6. METOPROLOL [Concomitant]
     Indication: ATRIAL FIBRILLATION
     Dosage: 50 MG
  7. ACIPHEX [Concomitant]
     Indication: DYSPEPSIA
     Dosage: 20 MG

REACTIONS (2)
  - ABDOMINAL DISCOMFORT [None]
  - VOMITING [None]
